FAERS Safety Report 25897358 (Version 1)
Quarter: 2025Q4

REPORT INFORMATION
  Report Type: Report from Study
  Country: US (occurrence: US)
  Receive Date: 20251008
  Receipt Date: 20251008
  Transmission Date: 20260118
  Serious: Yes (Hospitalization, Other)
  Sender: IOVANCE BIOTHERAPEUTICS MANUFACTURING LLC
  Company Number: US-IOVANCE BIOTHERAPEUTICS INC.-IOV2025000071

PATIENT

DRUGS (8)
  1. ALDESLEUKIN [Suspect]
     Active Substance: ALDESLEUKIN
     Indication: Product used for unknown indication
     Dosage: 35.2 10E6IU
     Route: 042
     Dates: start: 20210623, end: 20210625
  2. LIFILEUCEL [Suspect]
     Active Substance: LIFILEUCEL
     Indication: Product used for unknown indication
     Dosage: 100 ML ONCE
     Route: 042
     Dates: start: 20210622, end: 20210622
  3. CYCLOPHOSPHAMIDE [Suspect]
     Active Substance: CYCLOPHOSPHAMIDE
     Indication: Product used for unknown indication
     Dosage: 3520 MILLIGRAM, Q24 FOR 2 DAYS
     Route: 042
     Dates: start: 20210617, end: 20210618
  4. FLUDARABINE [Suspect]
     Active Substance: FLUDARABINE PHOSPHATE
     Indication: Product used for unknown indication
     Dosage: 23 MILLIGRAM, Q24 FOR 5 DAYS
     Route: 042
     Dates: start: 20210617, end: 20210621
  5. MESNA [Suspect]
     Active Substance: MESNA
     Indication: Product used for unknown indication
     Dosage: 875 MILLIGRAM, Q24 FOR 2 DAYS
     Route: 042
     Dates: start: 20210617, end: 20210618
  6. CEFEPIME [Suspect]
     Active Substance: CEFEPIME HYDROCHLORIDE
     Indication: Pneumonia
     Dosage: UNK
     Route: 065
     Dates: start: 20210816, end: 20210819
  7. VANCOMYCIN [Suspect]
     Active Substance: VANCOMYCIN
     Indication: Pneumonia
     Dosage: UNK
     Route: 065
     Dates: start: 20210816, end: 20210816
  8. VANCOMYCIN [Suspect]
     Active Substance: VANCOMYCIN
     Dosage: UNK
     Route: 065
     Dates: start: 20210818, end: 20210819

REACTIONS (2)
  - Diarrhoea [Recovered/Resolved]
  - Arthralgia [Recovered/Resolved]

NARRATIVE: CASE EVENT DATE: 20210823
